FAERS Safety Report 8382073 (Version 8)
Quarter: 2012Q4

REPORT INFORMATION
  Report Type: 
  Country: US (occurrence: US)
  Receive Date: 20120201
  Receipt Date: 20120907
  Transmission Date: 20130627
  Serious: Yes (Hospitalization, Other)
  Sender: FDA-Public Use
  Company Number: US-PURDUE-USA-2012-0081320

PATIENT
  Age: 50 Year
  Sex: Male
  Weight: 81 kg

DRUGS (19)
  1. OXYCONTIN (NDA 22-272) [Suspect]
     Indication: NECK PAIN
     Dosage: 80 mg, see text
     Route: 048
  2. OXYCONTIN (NDA 22-272) [Suspect]
     Indication: BACK PAIN
     Dosage: 30 mg, see text
     Route: 048
  3. OXYCONTIN (NDA 22-272) [Suspect]
     Indication: BREAKTHROUGH PAIN
     Dosage: 20 mg, see text
     Dates: start: 20120118, end: 20120119
  4. OXYCONTIN (NDA 22-272) [Suspect]
     Indication: DRUG WITHDRAWAL SYNDROME
     Dosage: 100 mg, see text
     Route: 048
  5. OXYCODONE HYDROCHLORIDE (SIMILAR TO NDA 22-272) [Suspect]
     Indication: PRODUCT USED FOR UNKNOWN INDICATION
     Dosage: 20 mg, see text
  6. ROXICODONE [Suspect]
     Indication: PRODUCT USED FOR UNKNOWN INDICATION
  7. OPANA [Suspect]
     Indication: PRODUCT USED FOR UNKNOWN INDICATION
  8. SUBOXONE [Concomitant]
     Indication: PRODUCT USED FOR UNKNOWN INDICATION
  9. METHADONE [Concomitant]
     Indication: PRODUCT USED FOR UNKNOWN INDICATION
     Dosage: UNK, see text
  10. ATIVAN [Concomitant]
     Indication: ANXIETY
  11. PROZAC [Concomitant]
     Indication: PRODUCT USED FOR UNKNOWN INDICATION
  12. KLONOPIN [Concomitant]
     Indication: PRODUCT USED FOR UNKNOWN INDICATION
  13. LYRICA [Concomitant]
     Indication: PRODUCT USED FOR UNKNOWN INDICATION
  14. SOMA [Concomitant]
     Indication: PRODUCT USED FOR UNKNOWN INDICATION
  15. PERCOCET                           /00446701/ [Concomitant]
     Indication: PRODUCT USED FOR UNKNOWN INDICATION
     Dosage: UNK, see text
     Route: 048
  16. LEXAPRO [Concomitant]
     Indication: DEPRESSION
  17. DEPAKOTE [Concomitant]
     Indication: DEPRESSION
  18. RISPERIDONE [Concomitant]
     Indication: DEPRESSION
  19. CYMBALTA [Concomitant]
     Indication: PRODUCT USED FOR UNKNOWN INDICATION

REACTIONS (43)
  - Overdose [Unknown]
  - Drug dependence [Unknown]
  - Drug abuse [Unknown]
  - Drug withdrawal syndrome [Not Recovered/Not Resolved]
  - Weight decreased [Not Recovered/Not Resolved]
  - Hospitalisation [Unknown]
  - Paranoia [Unknown]
  - Hallucination, auditory [Unknown]
  - Nervous system disorder [Unknown]
  - Major depression [Unknown]
  - Convulsion [Not Recovered/Not Resolved]
  - Regurgitation [Not Recovered/Not Resolved]
  - Eye disorder [Not Recovered/Not Resolved]
  - Discomfort [Unknown]
  - Bruxism [Not Recovered/Not Resolved]
  - Feeling hot [Not Recovered/Not Resolved]
  - Tinnitus [Not Recovered/Not Resolved]
  - Muscle twitching [Not Recovered/Not Resolved]
  - Pain [Not Recovered/Not Resolved]
  - Nightmare [Unknown]
  - Depersonalisation [Not Recovered/Not Resolved]
  - Decreased appetite [Not Recovered/Not Resolved]
  - Cold sweat [Unknown]
  - Feeling abnormal [Unknown]
  - Amnesia [Not Recovered/Not Resolved]
  - Insomnia [Not Recovered/Not Resolved]
  - Tremor [Not Recovered/Not Resolved]
  - Dehydration [Not Recovered/Not Resolved]
  - Vomiting [Not Recovered/Not Resolved]
  - Feeling cold [Not Recovered/Not Resolved]
  - Mood altered [Unknown]
  - Diarrhoea [Not Recovered/Not Resolved]
  - Nausea [Unknown]
  - Malaise [Unknown]
  - Drug tolerance [Unknown]
  - Unevaluable event [Unknown]
  - Asthenia [Unknown]
  - Self esteem decreased [Unknown]
  - Intentional drug misuse [Unknown]
  - Anxiety [Unknown]
  - Asocial behaviour [Unknown]
  - Hyperhidrosis [Unknown]
  - Panic reaction [Unknown]
